FAERS Safety Report 13572113 (Version 1)
Quarter: 2017Q2

REPORT INFORMATION
  Report Type: Spontaneous
  Country: US (occurrence: US)
  Receive Date: 20170523
  Receipt Date: 20170523
  Transmission Date: 20170830
  Serious: Yes (Other)
  Sender: FDA-Public Use
  Company Number: US-BAYER-2017-091163

PATIENT
  Age: 21 Year
  Sex: Female
  Weight: 90.98 kg

DRUGS (1)
  1. BAYER ASPIRIN [Suspect]
     Active Substance: ASPIRIN
     Indication: PAIN
     Route: 048

REACTIONS (5)
  - Anaphylactic shock [Recovered/Resolved]
  - Emotional disorder [Recovered/Resolved]
  - Pharyngeal oedema [Recovered/Resolved]
  - Eye swelling [Recovered/Resolved]
  - Dyspnoea [Recovered/Resolved]
